FAERS Safety Report 8904287 (Version 1)
Quarter: 2012Q4

REPORT INFORMATION
  Report Type: Report from Study
  Country: DE (occurrence: DE)
  Receive Date: 20121112
  Receipt Date: 20121112
  Transmission Date: 20130627
  Serious: Yes (Hospitalization)
  Sender: FDA-Public Use
  Company Number: DE-GLAXOSMITHKLINE-B0658133A

PATIENT
  Age: 55 Year
  Sex: Female
  Weight: 86 kg

DRUGS (8)
  1. LAPATINIB [Suspect]
     Indication: BREAST CANCER
     Dosage: 1000MG Per day
     Route: 048
     Dates: start: 20100520, end: 20100524
  2. PACLITAXEL [Suspect]
     Indication: BREAST CANCER
     Dosage: 313MG Every 3 weeks
     Route: 042
     Dates: start: 20100520, end: 20100520
  3. MYOCET [Suspect]
     Indication: BREAST CANCER
     Dosage: 107MG Every 3 weeks
     Route: 042
     Dates: start: 20100520, end: 20100520
  4. PANTOPRAZOL [Concomitant]
     Indication: HYPERCHLORHYDRIA
     Dosage: 20MG per day
     Dates: start: 20050101
  5. SULPIRID [Concomitant]
     Indication: DEPRESSION
     Dosage: 50MG Per day
     Route: 048
     Dates: start: 20090301
  6. KATADOLON [Concomitant]
     Indication: PAIN
     Dates: start: 20070801
  7. CITALOPRAM [Concomitant]
     Indication: DEPRESSION
     Dosage: 20MG per day
     Route: 048
     Dates: start: 20090701
  8. LERCANIDIPINE [Concomitant]
     Indication: HYPERTENSION
     Dosage: 10MG per day
     Route: 048
     Dates: start: 19890101

REACTIONS (3)
  - Diarrhoea [Recovered/Resolved]
  - Nausea [Unknown]
  - Vomiting [Unknown]
